FAERS Safety Report 7019122-4 (Version None)
Quarter: 2010Q3

REPORT INFORMATION
  Report Type: 
  Country: None (occurrence: None)
  Receive Date: 20100928
  Receipt Date: 20100917
  Transmission Date: 20110219
  Serious: Yes (Life-Threatening)
  Sender: FDA-Public Use
  Company Number: B0669020A

PATIENT
  Sex: Male

DRUGS (5)
  1. ZANTAC [Suspect]
     Indication: GASTRIC ULCER
     Dosage: 300MG PER DAY
     Route: 048
     Dates: start: 20100602, end: 20100720
  2. EVAMYL [Suspect]
     Indication: SCHIZOPHRENIA
     Dosage: 1MG PER DAY
     Route: 048
     Dates: start: 20100301, end: 20100720
  3. ALDACTONE [Suspect]
     Indication: ASCITES
     Dosage: 25MG PER DAY
     Route: 048
     Dates: start: 20100525, end: 20100720
  4. RISPERDAL [Suspect]
     Indication: SCHIZOPHRENIA
     Dosage: 1MG PER DAY
     Route: 048
     Dates: start: 20100506, end: 20100720
  5. URSO 250 [Suspect]
     Indication: HERPES SIMPLEX HEPATITIS
     Dosage: 300MG PER DAY
     Route: 048
     Dates: start: 20100620, end: 20100720

REACTIONS (4)
  - HEPATIC ENZYME INCREASED [None]
  - HEPATITIS [None]
  - JAUNDICE [None]
  - LIVER DISORDER [None]
